FAERS Safety Report 17620650 (Version 1)
Quarter: 2020Q2

REPORT INFORMATION
  Report Type: Spontaneous
  Country: US (occurrence: US)
  Receive Date: 20200403
  Receipt Date: 20200403
  Transmission Date: 20200713
  Serious: Yes (Other)
  Sender: FDA-Public Use
  Company Number: US-ELI_LILLY_AND_COMPANY-US202003012096

PATIENT
  Age: 65 Year
  Sex: Female

DRUGS (1)
  1. TRULICITY [Suspect]
     Active Substance: DULAGLUTIDE
     Indication: DIABETES MELLITUS
     Dosage: 1.5 MG, WEEKLY (1/W)
     Route: 058

REACTIONS (7)
  - Meibomianitis [Unknown]
  - Fine motor skill dysfunction [Unknown]
  - Incorrect dose administered [Unknown]
  - Breast cancer [Unknown]
  - Inappropriate schedule of product administration [Unknown]
  - Visual acuity reduced [Unknown]
  - Overdose [Unknown]

NARRATIVE: CASE EVENT DATE: 20200323
